FAERS Safety Report 5848639-0 (Version None)
Quarter: 2008Q3

REPORT INFORMATION
  Report Type: 
  Country: None (occurrence: None)
  Receive Date: 20080818
  Receipt Date: 20080808
  Transmission Date: 20090109
  Serious: Yes (Hospitalization)
  Sender: FDA-Public Use
  Company Number: US-ABBOTT-08P-163-0469741-00

PATIENT
  Sex: Female
  Weight: 108.05 kg

DRUGS (5)
  1. DEPAKOTE ER [Suspect]
     Indication: CONVULSION
     Dosage: 2 TABS AM, 2 TABS AT NOON, 3 TABS PM
     Route: 048
     Dates: start: 19960101
  2. GABAPENTIN [Concomitant]
     Indication: DRUG USE FOR UNKNOWN INDICATION
     Route: 048
  3. FLOREXATINE [Concomitant]
     Indication: ANXIETY
  4. FUROSEMIDE [Concomitant]
     Indication: DIURETIC THERAPY
     Route: 048
  5. AMISALENE [Concomitant]
     Indication: TREMOR

REACTIONS (6)
  - ACUTE RESPIRATORY DISTRESS SYNDROME [None]
  - DIARRHOEA [None]
  - HEADACHE [None]
  - MEDICATION RESIDUE [None]
  - PYREXIA [None]
  - WEIGHT INCREASED [None]
